FAERS Safety Report 5277020-0 (Version None)
Quarter: 2007Q1

REPORT INFORMATION
  Report Type: 
  Country: None (occurrence: None)
  Receive Date: 20070327
  Receipt Date: 20070126
  Transmission Date: 20070707
  Serious: No
  Sender: FDA-Public Use
  Company Number: US-BRISTOL-MYERS SQUIBB COMPANY-13659297

PATIENT
  Sex: Female

DRUGS (1)
  1. ORENCIA [Suspect]
     Route: 042

REACTIONS (1)
  - JOINT SWELLING [None]
